FAERS Safety Report 25582828 (Version 1)
Quarter: 2025Q3

REPORT INFORMATION
  Report Type: Spontaneous
  Country: CN (occurrence: CN)
  Receive Date: 20250720
  Receipt Date: 20250720
  Transmission Date: 20251021
  Serious: Yes (Other)
  Sender: BEIGENE
  Company Number: CN-BEIGENE-BGN-2025-011450

PATIENT
  Age: 37 Year

DRUGS (10)
  1. TISLELIZUMAB [Suspect]
     Active Substance: TISLELIZUMAB
     Indication: Nasopharyngeal cancer
     Dosage: 200 MILLIGRAM, QD
  2. TISLELIZUMAB [Suspect]
     Active Substance: TISLELIZUMAB
     Dosage: 200 MILLIGRAM, QD
     Route: 041
  3. TISLELIZUMAB [Suspect]
     Active Substance: TISLELIZUMAB
     Dosage: 200 MILLIGRAM, QD
     Route: 041
  4. TISLELIZUMAB [Suspect]
     Active Substance: TISLELIZUMAB
     Dosage: 200 MILLIGRAM, QD
  5. NIMOTUZUMAB [Suspect]
     Active Substance: NIMOTUZUMAB
     Indication: Nasopharyngeal cancer
     Route: 041
  6. NIMOTUZUMAB [Suspect]
     Active Substance: NIMOTUZUMAB
  7. CISPLATIN [Suspect]
     Active Substance: CISPLATIN
     Indication: Nasopharyngeal cancer
     Dosage: 65 MILLIGRAM, QD
  8. CISPLATIN [Suspect]
     Active Substance: CISPLATIN
     Dosage: 65 MILLIGRAM, QD
     Route: 041
  9. CISPLATIN [Suspect]
     Active Substance: CISPLATIN
     Dosage: 60 MILLIGRAM, QD
  10. CISPLATIN [Suspect]
     Active Substance: CISPLATIN
     Dosage: 60 MILLIGRAM, QD
     Route: 041

REACTIONS (2)
  - Myelosuppression [Recovering/Resolving]
  - Nausea [Recovering/Resolving]
